APPROVED DRUG PRODUCT: BENZNIDAZOLE
Active Ingredient: BENZNIDAZOLE
Strength: 100MG
Dosage Form/Route: TABLET;ORAL
Application: N209570 | Product #002
Applicant: CHEMO RESEARCH SL
Approved: Aug 29, 2017 | RLD: Yes | RS: Yes | Type: RX